FAERS Safety Report 16161826 (Version 2)
Quarter: 2019Q2

REPORT INFORMATION
  Report Type: Spontaneous
  Country: DE (occurrence: DE)
  Receive Date: 20190405
  Receipt Date: 20190424
  Transmission Date: 20190711
  Serious: Yes (Other)
  Sender: FDA-Public Use
  Company Number: DE-AUROBINDO-AUR-APL-2019-017421

PATIENT

DRUGS (1)
  1. SERTRALINE AUROBINDO FILMCOATED TABLETS 100MG [Suspect]
     Active Substance: SERTRALINE HYDROCHLORIDE
     Indication: DEPRESSION
     Dosage: 1 DOSAGE FORM, (MOST LIKELY IN THE MORNING)
     Route: 048

REACTIONS (1)
  - Weight increased [Unknown]
